FAERS Safety Report 4943809-8 (Version None)
Quarter: 2006Q1

REPORT INFORMATION
  Report Type: 
  Country: None (occurrence: None)
  Receive Date: 20060310
  Receipt Date: 20060226
  Transmission Date: 20060701
  Serious: Yes (Death, Life-Threatening)
  Sender: FDA-Public Use
  Company Number: 2006029251

PATIENT
  Age: 53 Year
  Sex: Male
  Weight: 58 kg

DRUGS (8)
  1. SUTENT [Suspect]
     Indication: GASTROINTESTINAL STROMAL TUMOUR
     Dosage: (50 MG, 1 IN 1 D), ORAL
     Route: 048
     Dates: start: 20060116, end: 20060213
  2. TIALORID (AMILORIDE, HYDROCHLOROTHIAZIDE) [Concomitant]
  3. NO SPA (DROTAVERINE HYDROCHLORIDE)) [Concomitant]
  4. GASEC (OMEPRAZOLE) [Concomitant]
  5. KETONAL (KETOPROFEN) [Concomitant]
  6. LOPERAMIDE (LOPERMAIDE) [Concomitant]
  7. KETOCONAZOLE [Concomitant]
  8. MORPHINE [Concomitant]

REACTIONS (3)
  - DIARRHOEA [None]
  - DISEASE PROGRESSION [None]
  - GASTROINTESTINAL HAEMORRHAGE [None]
